FAERS Safety Report 9298019 (Version 2)
Quarter: 2013Q4

REPORT INFORMATION
  Report Type: Spontaneous
  Country: IT (occurrence: IT)
  Receive Date: 20130520
  Receipt Date: 20131113
  Transmission Date: 20140711
  Serious: Yes (Other)
  Sender: FDA-Public Use
  Company Number: IT-JNJFOC-20130506682

PATIENT
  Sex: 0

DRUGS (7)
  1. DOXORUBICIN [Suspect]
     Indication: B-CELL LYMPHOMA
     Route: 042
  2. DOXORUBICIN [Suspect]
     Indication: B-CELL LYMPHOMA
     Route: 042
  3. CYCLOPHOSPHAMIDE [Suspect]
     Indication: B-CELL LYMPHOMA
     Route: 042
  4. VINCRISTINE [Suspect]
     Indication: B-CELL LYMPHOMA
     Route: 042
  5. PREDNISONE [Suspect]
     Indication: B-CELL LYMPHOMA
     Route: 048
  6. RITUXIMAB [Suspect]
     Indication: B-CELL LYMPHOMA
     Route: 042
  7. GRANULOCYTE COLONY-STIMULATING FACTOR [Concomitant]
     Indication: B-CELL LYMPHOMA
     Route: 065

REACTIONS (7)
  - B-cell lymphoma [Unknown]
  - Lung neoplasm malignant [Unknown]
  - Cancer in remission [Unknown]
  - Neurotoxicity [Unknown]
  - Neutropenia [Unknown]
  - Thrombocytopenia [Unknown]
  - Infection [Unknown]
